FAERS Safety Report 5720638-9 (Version None)
Quarter: 2008Q2

REPORT INFORMATION
  Report Type: 
  Country: None (occurrence: None)
  Receive Date: 20080425
  Receipt Date: 20080425
  Transmission Date: 20081010
  Serious: Yes (Hospitalization)
  Sender: FDA-Public Use
  Company Number: None

PATIENT
  Sex: Female
  Weight: 82.45 kg

DRUGS (2)
  1. CARBOPLATIN [Suspect]
     Dosage: 368 MG
  2. TAXOL [Suspect]
     Dosage: 336 MG

REACTIONS (18)
  - ABDOMINAL PAIN [None]
  - ASTHENIA [None]
  - ATRIAL FIBRILLATION [None]
  - CANDIDIASIS [None]
  - CONSTIPATION [None]
  - DEHYDRATION [None]
  - DISEASE PROGRESSION [None]
  - GENERAL PHYSICAL HEALTH DETERIORATION [None]
  - HAEMATEMESIS [None]
  - HAEMOGLOBIN DECREASED [None]
  - HEART RATE INCREASED [None]
  - LETHARGY [None]
  - NAUSEA [None]
  - ORAL PAIN [None]
  - PAIN [None]
  - PANCREATITIS [None]
  - PERFORMANCE STATUS DECREASED [None]
  - VOMITING [None]
